FAERS Safety Report 5413497-5 (Version None)
Quarter: 2007Q3

REPORT INFORMATION
  Report Type: 
  Country: None (occurrence: None)
  Receive Date: 20070814
  Receipt Date: 20070806
  Transmission Date: 20080115
  Serious: Yes (Hospitalization)
  Sender: FDA-Public Use
  Company Number: JP-ASTRAZENECA-2007AP01325

PATIENT
  Age: 21056 Day
  Sex: Female
  Weight: 51 kg

DRUGS (5)
  1. IRESSA [Suspect]
     Indication: NON-SMALL CELL LUNG CANCER STAGE IV
     Route: 048
     Dates: start: 20061205, end: 20070225
  2. IRESSA [Suspect]
     Indication: LUNG ADENOCARCINOMA
     Route: 048
     Dates: start: 20061205, end: 20070225
  3. IRESSA [Suspect]
     Route: 048
     Dates: start: 20070301, end: 20070703
  4. IRESSA [Suspect]
     Route: 048
     Dates: start: 20070301, end: 20070703
  5. CALONAL [Concomitant]
     Indication: PYREXIA
     Route: 048
     Dates: start: 20070120

REACTIONS (1)
  - PYREXIA [None]
